FAERS Safety Report 25402595 (Version 1)
Quarter: 2025Q2

REPORT INFORMATION
  Report Type: Spontaneous
  Country: CA (occurrence: CA)
  Receive Date: 20250605
  Receipt Date: 20250605
  Transmission Date: 20250717
  Serious: Yes (Death)
  Sender: MYLAN
  Company Number: CA-MYLANLABS-2025M1047372

PATIENT
  Age: 36 Year
  Sex: Male

DRUGS (44)
  1. PREGABALIN [Suspect]
     Active Substance: PREGABALIN
     Indication: Product used for unknown indication
  2. PREGABALIN [Suspect]
     Active Substance: PREGABALIN
     Route: 065
  3. PREGABALIN [Suspect]
     Active Substance: PREGABALIN
     Route: 065
  4. PREGABALIN [Suspect]
     Active Substance: PREGABALIN
  5. AMPHETAMINE [Suspect]
     Active Substance: AMPHETAMINE
     Indication: Product used for unknown indication
  6. AMPHETAMINE [Suspect]
     Active Substance: AMPHETAMINE
     Route: 065
  7. AMPHETAMINE [Suspect]
     Active Substance: AMPHETAMINE
     Route: 065
  8. AMPHETAMINE [Suspect]
     Active Substance: AMPHETAMINE
  9. BUPROPION [Suspect]
     Active Substance: BUPROPION
     Indication: Product used for unknown indication
  10. BUPROPION [Suspect]
     Active Substance: BUPROPION
     Route: 065
  11. BUPROPION [Suspect]
     Active Substance: BUPROPION
     Route: 065
  12. BUPROPION [Suspect]
     Active Substance: BUPROPION
  13. CANNABIS SATIVA FLOWERING TOP [Suspect]
     Active Substance: CANNABIS SATIVA FLOWERING TOP
     Indication: Product used for unknown indication
  14. CANNABIS SATIVA FLOWERING TOP [Suspect]
     Active Substance: CANNABIS SATIVA FLOWERING TOP
     Route: 065
  15. CANNABIS SATIVA FLOWERING TOP [Suspect]
     Active Substance: CANNABIS SATIVA FLOWERING TOP
     Route: 065
  16. CANNABIS SATIVA FLOWERING TOP [Suspect]
     Active Substance: CANNABIS SATIVA FLOWERING TOP
  17. LORAZEPAM [Suspect]
     Active Substance: LORAZEPAM
     Indication: Product used for unknown indication
  18. LORAZEPAM [Suspect]
     Active Substance: LORAZEPAM
     Route: 065
  19. LORAZEPAM [Suspect]
     Active Substance: LORAZEPAM
     Route: 065
  20. LORAZEPAM [Suspect]
     Active Substance: LORAZEPAM
  21. METHADOSE SUGAR-FREE [Suspect]
     Active Substance: METHADONE HYDROCHLORIDE
     Indication: Drug withdrawal maintenance therapy
     Dosage: 100 MILLIGRAM, QD (1 EVERY 1 DAYS)
  22. METHADOSE SUGAR-FREE [Suspect]
     Active Substance: METHADONE HYDROCHLORIDE
     Dosage: 100 MILLIGRAM, QD (1 EVERY 1 DAYS)
     Route: 065
  23. METHADOSE SUGAR-FREE [Suspect]
     Active Substance: METHADONE HYDROCHLORIDE
     Dosage: 100 MILLIGRAM, QD (1 EVERY 1 DAYS)
     Route: 065
  24. METHADOSE SUGAR-FREE [Suspect]
     Active Substance: METHADONE HYDROCHLORIDE
     Dosage: 100 MILLIGRAM, QD (1 EVERY 1 DAYS)
  25. METHYLPHENIDATE [Suspect]
     Active Substance: METHYLPHENIDATE
     Indication: Product used for unknown indication
  26. METHYLPHENIDATE [Suspect]
     Active Substance: METHYLPHENIDATE
     Route: 065
  27. METHYLPHENIDATE [Suspect]
     Active Substance: METHYLPHENIDATE
     Route: 065
  28. METHYLPHENIDATE [Suspect]
     Active Substance: METHYLPHENIDATE
  29. MIRTAZAPINE [Suspect]
     Active Substance: MIRTAZAPINE
     Indication: Product used for unknown indication
  30. MIRTAZAPINE [Suspect]
     Active Substance: MIRTAZAPINE
     Route: 065
  31. MIRTAZAPINE [Suspect]
     Active Substance: MIRTAZAPINE
     Route: 065
  32. MIRTAZAPINE [Suspect]
     Active Substance: MIRTAZAPINE
  33. QUETIAPINE [Suspect]
     Active Substance: QUETIAPINE
     Indication: Product used for unknown indication
  34. QUETIAPINE [Suspect]
     Active Substance: QUETIAPINE
     Route: 065
  35. QUETIAPINE [Suspect]
     Active Substance: QUETIAPINE
     Route: 065
  36. QUETIAPINE [Suspect]
     Active Substance: QUETIAPINE
  37. TRAZODONE [Suspect]
     Active Substance: TRAZODONE HYDROCHLORIDE
     Indication: Product used for unknown indication
  38. TRAZODONE [Suspect]
     Active Substance: TRAZODONE HYDROCHLORIDE
     Route: 065
  39. TRAZODONE [Suspect]
     Active Substance: TRAZODONE HYDROCHLORIDE
     Route: 065
  40. TRAZODONE [Suspect]
     Active Substance: TRAZODONE HYDROCHLORIDE
  41. ZOPICLONE [Suspect]
     Active Substance: ZOPICLONE
     Indication: Product used for unknown indication
  42. ZOPICLONE [Suspect]
     Active Substance: ZOPICLONE
     Route: 065
  43. ZOPICLONE [Suspect]
     Active Substance: ZOPICLONE
     Route: 065
  44. ZOPICLONE [Suspect]
     Active Substance: ZOPICLONE

REACTIONS (2)
  - Accidental poisoning [Fatal]
  - Substance use [Fatal]
